FAERS Safety Report 8709114 (Version 8)
Quarter: 2019Q2

REPORT INFORMATION
  Report Type: Spontaneous
  Country: US (occurrence: US)
  Receive Date: 20120806
  Receipt Date: 20190405
  Transmission Date: 20190711
  Serious: Yes (Hospitalization, Other)
  Sender: FDA-Public Use
  Company Number: US-009507513-1207USA010316

PATIENT
  Sex: Female

DRUGS (8)
  1. FOSAMAX [Suspect]
     Active Substance: ALENDRONATE SODIUM
     Indication: OSTEOPENIA
     Dosage: 10 MG, UNK
     Route: 048
     Dates: start: 199901, end: 200101
  2. ALENDRONATE SODIUM. [Suspect]
     Active Substance: ALENDRONATE SODIUM
     Indication: OSTEOPENIA
     Dosage: 70 MG, UNK
     Route: 048
     Dates: start: 20080209, end: 201010
  3. ALENDRONATE SODIUM. [Suspect]
     Active Substance: ALENDRONATE SODIUM
     Indication: OSTEOPOROSIS
  4. ALENDRONATE SODIUM. [Suspect]
     Active Substance: ALENDRONATE SODIUM
     Indication: OSTEOPOROSIS
  5. FOSAMAX [Suspect]
     Active Substance: ALENDRONATE SODIUM
     Indication: OSTEOPOROSIS
  6. FOSAMAX [Suspect]
     Active Substance: ALENDRONATE SODIUM
     Indication: OSTEOPOROSIS
     Dosage: 70 MG, QW
     Route: 048
     Dates: start: 200101
  7. ALENDRONATE SODIUM. [Suspect]
     Active Substance: ALENDRONATE SODIUM
     Indication: OSTEOPENIA
     Dosage: 70 MG, UNK
     Route: 048
     Dates: start: 20100702
  8. FOSAMAX [Suspect]
     Active Substance: ALENDRONATE SODIUM
     Indication: OSTEOPENIA
     Dosage: 70 MG, QW
     Route: 048
     Dates: start: 20100804

REACTIONS (36)
  - Eye disorder [Unknown]
  - Electrocardiogram ST segment depression [Recovered/Resolved]
  - Hyperlipidaemia [Unknown]
  - Fall [Unknown]
  - Vitreous detachment [Unknown]
  - Nausea [Unknown]
  - Rheumatoid arthritis [Unknown]
  - Retinal vein occlusion [Not Recovered/Not Resolved]
  - Retinopathy hypertensive [Unknown]
  - Adverse drug reaction [Unknown]
  - Internal fixation of fracture [Unknown]
  - Closed fracture manipulation [Unknown]
  - Cyst rupture [Unknown]
  - Cataract [Unknown]
  - Supraventricular tachycardia [Unknown]
  - Palpitations [Unknown]
  - Femur fracture [Recovered/Resolved]
  - Fall [Unknown]
  - Hypertension [Not Recovered/Not Resolved]
  - Intraocular lens implant [Unknown]
  - Cataract operation [Unknown]
  - Chest pain [Unknown]
  - Bursitis [Unknown]
  - Premature menopause [Unknown]
  - Ulna fracture [Unknown]
  - Low turnover osteopathy [Unknown]
  - Cystoid macular oedema [Unknown]
  - Electrocardiogram ST-T change [Unknown]
  - Dyspnoea [Unknown]
  - Hysterectomy [Unknown]
  - Stress [Unknown]
  - Supraventricular tachycardia [Recovering/Resolving]
  - Radius fracture [Unknown]
  - Visual impairment [Unknown]
  - Fall [Unknown]
  - Gastrooesophageal reflux disease [Unknown]

NARRATIVE: CASE EVENT DATE: 1999
